FAERS Safety Report 18875776 (Version 2)
Quarter: 2021Q2

REPORT INFORMATION
  Report Type: Report from Study
  Country: US (occurrence: US)
  Receive Date: 20210211
  Receipt Date: 20210414
  Transmission Date: 20210717
  Serious: Yes (Other)
  Sender: FDA-Public Use
  Company Number: US-ROCHE-2762364

PATIENT
  Age: 67 Year
  Sex: Female
  Weight: 72.8 kg

DRUGS (17)
  1. IPILIMUMAB [Suspect]
     Active Substance: IPILIMUMAB
     Indication: MALIGNANT MELANOMA
     Route: 042
     Dates: start: 20201208, end: 20210119
  2. PREDNISONE. [Concomitant]
     Active Substance: PREDNISONE
     Dosage: FOR 70 MG?10 YEARS PLUS AND ONGOING
  3. TRAMADOL. [Concomitant]
     Active Substance: TRAMADOL
     Dosage: 10 YEARS PLUS AND ONGOING
     Dates: start: 20210111
  4. RITUXIMAB. [Suspect]
     Active Substance: RITUXIMAB
     Indication: MALIGNANT MELANOMA
     Route: 065
  5. NIVOLUMAB [Suspect]
     Active Substance: NIVOLUMAB
     Indication: MALIGNANT MELANOMA
     Route: 042
     Dates: start: 20201208, end: 20210119
  6. VITAMIN C [Concomitant]
     Active Substance: ASCORBIC ACID
     Dosage: 10 YEARS PLUS AND ONGOING
  7. LORAZEPAM. [Concomitant]
     Active Substance: LORAZEPAM
     Dosage: 10 YEARS PLUS AND ONGOING
  8. BENADRYL [Concomitant]
     Active Substance: DIPHENHYDRAMINE HYDROCHLORIDE
     Dates: start: 20201230
  9. ACYCLOVIR. [Concomitant]
     Active Substance: ACYCLOVIR
     Dosage: 10 YEARS PLUS AND ONGOING
  10. ZINC. [Concomitant]
     Active Substance: ZINC
     Dosage: 10 YEARS PLUS AND ONGOING
  11. DOCUSATE [Concomitant]
     Active Substance: DOCUSATE
     Dosage: 10 YEARS PLUS AND ONGOING
  12. OMEGA 3 [Concomitant]
     Active Substance: OMEGA-3 FATTY ACIDS
     Dosage: 10 YEARS PLUS AND ONGOING
  13. PANTOPRAZOLE [Concomitant]
     Active Substance: PANTOPRAZOLE
     Dosage: FOR 2 WEEKS?10 YEARS PLUS AND ONGOING
  14. BENADRYL [Concomitant]
     Active Substance: DIPHENHYDRAMINE HYDROCHLORIDE
     Dates: start: 20201223
  15. CALCIUM [Concomitant]
     Active Substance: CALCIUM
     Dosage: 10 YEARS PLUS AND ONGOING
  16. MAGNESIUM [Concomitant]
     Active Substance: MAGNESIUM
     Dosage: 10 YEARS PLUS AND ONGOING
  17. BENADRYL [Concomitant]
     Active Substance: DIPHENHYDRAMINE HYDROCHLORIDE
     Dosage: 10 YEARS PLUS AND ONGOING
     Dates: start: 20201226

REACTIONS (5)
  - Muscle spasms [Unknown]
  - Abdominal pain lower [Unknown]
  - Hepatotoxicity [Unknown]
  - Alanine aminotransferase increased [Unknown]
  - Aspartate aminotransferase increased [Unknown]

NARRATIVE: CASE EVENT DATE: 20210129
